FAERS Safety Report 11598514 (Version 1)
Quarter: 2015Q3

REPORT INFORMATION
  Report Type: Spontaneous
  Country: US (occurrence: US)
  Receive Date: 20150916
  Receipt Date: 20150916
  Transmission Date: 20151125
  Serious: No
  Sender: FDA-Public Use
  Company Number: US-ELI_LILLY_AND_COMPANY-US200712002833

PATIENT
  Sex: Female

DRUGS (3)
  1. CALCIUM CITRATE [Concomitant]
     Active Substance: CALCIUM CITRATE
     Dosage: 250 MG, DAILY (1/D)
     Route: 048
  2. CALCIUM CITRATE [Concomitant]
     Active Substance: CALCIUM CITRATE
     Dosage: 800 MG, DAILY (1/D)
     Route: 048
  3. FORTEO [Suspect]
     Active Substance: TERIPARATIDE
     Indication: BONE DENSITY DECREASED
     Route: 058
     Dates: start: 20071016

REACTIONS (1)
  - Urine calcium increased [Recovered/Resolved]

NARRATIVE: CASE EVENT DATE: 20071119
